FAERS Safety Report 8153435-8 (Version None)
Quarter: 2012Q1

REPORT INFORMATION
  Report Type: 
  Country: None (occurrence: None)
  Receive Date: 20120221
  Receipt Date: 20120207
  Transmission Date: 20120608
  Serious: Yes (Other)
  Sender: FDA-Public Use
  Company Number: DE-ROCHE-1039281

PATIENT

DRUGS (3)
  1. SORAFENIB [Suspect]
     Indication: NEOPLASM
  2. AVASTIN [Suspect]
     Indication: NEOPLASM
  3. PACLITAXEL [Suspect]
     Indication: NEOPLASM
     Dosage: D1, 8 15

REACTIONS (5)
  - NEUROPATHY PERIPHERAL [None]
  - RASH [None]
  - DYSPHONIA [None]
  - STOMATITIS [None]
  - HYPERTENSION [None]
